FAERS Safety Report 14512131 (Version 2)
Quarter: 2018Q1

REPORT INFORMATION
  Report Type: Spontaneous
  Country: FR (occurrence: FR)
  Receive Date: 20180209
  Receipt Date: 20180220
  Transmission Date: 20180509
  Serious: Yes (Other)
  Sender: FDA-Public Use
  Company Number: FR-PFIZER INC-2018054369

PATIENT

DRUGS (9)
  1. ROPIVACAINE HYDROCHLORIDE. [Suspect]
     Active Substance: ROPIVACAINE HYDROCHLORIDE
     Dosage: 20 ML, UNK
     Route: 064
  2. KETOPROFEN. [Suspect]
     Active Substance: KETOPROFEN
     Dosage: 50 MG, QID
     Route: 064
  3. ADRENALIN /00003901/ [Suspect]
     Active Substance: EPINEPHRINE
     Dosage: UNK
     Route: 064
  4. MORPHINE SULFATE. [Suspect]
     Active Substance: MORPHINE SULFATE
     Dosage: 2 MG, QID
     Route: 064
  5. NEFOPAM [Suspect]
     Active Substance: NEFOPAM
     Dosage: 40 MG, QID
     Route: 064
  6. PARACETAMOL [Suspect]
     Active Substance: ACETAMINOPHEN
     Dosage: 1 G, QID
     Route: 064
  7. LIDOCAINE. [Suspect]
     Active Substance: LIDOCAINE
     Dosage: 15 ML, UNK
     Route: 064
  8. ENOXAPARIN [Suspect]
     Active Substance: ENOXAPARIN
     Dosage: 40 MG/24 HOUR
     Route: 064
  9. SUFENTANIL [Suspect]
     Active Substance: SUFENTANIL
     Dosage: 5 UG, UNK
     Route: 064

REACTIONS (2)
  - Foetal exposure during pregnancy [Unknown]
  - Foetal heart rate abnormal [Unknown]
